FAERS Safety Report 20220731 (Version 2)
Quarter: 2022Q1

REPORT INFORMATION
  Report Type: Report from Study
  Country: DE (occurrence: DE)
  Receive Date: 20211223
  Receipt Date: 20220104
  Transmission Date: 20220423
  Serious: Yes (Other)
  Sender: FDA-Public Use
  Company Number: DE-LEO Pharma-340079

PATIENT
  Age: 63 Year
  Sex: Male
  Weight: 120 kg

DRUGS (2)
  1. BRODALUMAB [Suspect]
     Active Substance: BRODALUMAB
     Indication: Psoriasis
     Dosage: 210MG / PRE-FILLED SYRINGE
     Route: 065
     Dates: start: 20210728, end: 20211020
  2. BRODALUMAB [Suspect]
     Active Substance: BRODALUMAB
     Dosage: 210MG / PRE-FILLED SYRINGE
     Route: 065
     Dates: start: 20211208

REACTIONS (2)
  - Polymyalgia rheumatica [Recovering/Resolving]
  - Spinal stenosis [Unknown]

NARRATIVE: CASE EVENT DATE: 20211101
